FAERS Safety Report 10035017 (Version 2)
Quarter: 2014Q2

REPORT INFORMATION
  Report Type: Spontaneous
  Country: US (occurrence: None)
  Receive Date: 20140321
  Receipt Date: 20140508
  Transmission Date: 20141212
  Serious: Yes (Hospitalization, Other)
  Sender: FDA-Public Use
  Company Number: 2014STPI000094

PATIENT
  Age: 53 Year
  Sex: Male

DRUGS (1)
  1. MATULANE [Suspect]
     Indication: BRAIN NEOPLASM MALIGNANT
     Route: 048
     Dates: start: 201312

REACTIONS (6)
  - Pulmonary embolism [None]
  - Coagulopathy [None]
  - Fall [None]
  - Brain neoplasm malignant [None]
  - Condition aggravated [None]
  - Mobility decreased [None]
